FAERS Safety Report 8306860-6 (Version None)
Quarter: 2012Q2

REPORT INFORMATION
  Report Type: 
  Country: None (occurrence: None)
  Receive Date: 20120424
  Receipt Date: 20120417
  Transmission Date: 20120825
  Serious: No
  Sender: FDA-Public Use
  Company Number: US-PFIZER INC-2012096055

PATIENT
  Sex: Male
  Weight: 99.32 kg

DRUGS (3)
  1. TOVIAZ [Suspect]
     Indication: PROSTATIC OPERATION
     Dosage: 08 MG, DAILY
     Route: 048
     Dates: start: 20120208
  2. INSULIN [Concomitant]
     Indication: DIABETES MELLITUS
     Dosage: 26 UNITS IN MORNING AND 50 UNITS AT NIGHT
  3. SILODOSIN [Suspect]
     Indication: PROSTATIC OPERATION
     Dosage: UNK

REACTIONS (2)
  - URINARY INCONTINENCE [None]
  - DRUG INEFFECTIVE [None]
